FAERS Safety Report 9790898 (Version 1)
Quarter: 2013Q4

REPORT INFORMATION
  Report Type: Spontaneous
  Country: IT (occurrence: IT)
  Receive Date: 20131231
  Receipt Date: 20131231
  Transmission Date: 20140711
  Serious: Yes (Other)
  Sender: FDA-Public Use
  Company Number: IT-ABBVIE-13P-083-1185012-00

PATIENT
  Age: 4 Year
  Sex: Female

DRUGS (3)
  1. DEPAKINE [Suspect]
     Indication: EPILEPSY CONGENITAL
     Route: 042
     Dates: start: 20130908
  2. KEPPRA [Suspect]
     Indication: EPILEPSY CONGENITAL
     Route: 042
     Dates: start: 20130908
  3. VIMPAT [Suspect]
     Indication: EPILEPSY CONGENITAL
     Route: 042
     Dates: start: 20130908

REACTIONS (3)
  - Ammonia increased [Recovered/Resolved]
  - Gait disturbance [Recovered/Resolved]
  - Somnolence [Recovered/Resolved]
